FAERS Safety Report 4875580-2 (Version None)
Quarter: 2006Q1

REPORT INFORMATION
  Report Type: 
  Country: None (occurrence: None)
  Receive Date: 20060109
  Receipt Date: 20051216
  Transmission Date: 20060701
  Serious: Yes (Death, Hospitalization)
  Sender: FDA-Public Use
  Company Number: CH-ROCHE-429081

PATIENT
  Age: 42 Year
  Sex: Female
  Weight: 70 kg

DRUGS (14)
  1. ROCEPHIN [Suspect]
     Indication: INFECTION
     Route: 042
     Dates: start: 20050823, end: 20050827
  2. HERCEPTIN [Suspect]
     Indication: LUNG NEOPLASM MALIGNANT
     Route: 041
     Dates: start: 20050819, end: 20050819
  3. TAXOTERE [Suspect]
     Indication: LUNG NEOPLASM MALIGNANT
     Dosage: COMPLETED NINE UNSPECIFIED CYCLES
     Route: 041
     Dates: start: 20050506, end: 20050805
  4. ZITHROMAX [Suspect]
     Indication: INFECTION
     Route: 065
     Dates: start: 20050817, end: 20050819
  5. DIFLUCAN [Suspect]
     Indication: INFECTION
     Route: 065
     Dates: start: 20050815, end: 20050815
  6. BUSCOPAN [Concomitant]
  7. BENERVA [Concomitant]
  8. FRAGMIN [Concomitant]
  9. METHYLPREDNISOLONE [Concomitant]
  10. DIGOXIN [Concomitant]
  11. MORPHINE [Concomitant]
  12. CETIRIZINE HCL [Concomitant]
  13. LASIX [Concomitant]
  14. NAVOBAN [Concomitant]

REACTIONS (8)
  - ALVEOLITIS ALLERGIC [None]
  - DYSPNOEA [None]
  - HYPERGLYCAEMIA [None]
  - OEDEMA [None]
  - PULMONARY HYPERTENSION [None]
  - RESPIRATORY ACIDOSIS [None]
  - TACHYCARDIA [None]
  - TRICUSPID VALVE INCOMPETENCE [None]
